FAERS Safety Report 7830039-5 (Version None)
Quarter: 2011Q4

REPORT INFORMATION
  Report Type: 
  Country: None (occurrence: None)
  Receive Date: 20111018
  Receipt Date: 20111011
  Transmission Date: 20120403
  Serious: Yes (Other)
  Sender: FDA-Public Use
  Company Number: KAD201110-000033

PATIENT
  Age: 45 Year
  Sex: Male
  Weight: 90.7194 kg

DRUGS (5)
  1. INTERFERON [Suspect]
     Indication: HEPATITIS C
     Dates: start: 20110701
  2. RIBAVIRIN [Suspect]
     Indication: HEPATITIS C
     Dosage: TOTAL DAILY DOSE 1200 MG, 600 MG IN THE MORNING AND 600 MG IN EVENING, TOTAL DAILY DOSE 900 MG, 600
     Dates: start: 20110901
  3. RIBAVIRIN [Suspect]
     Indication: HEPATITIS C
     Dosage: TOTAL DAILY DOSE 1200 MG, 600 MG IN THE MORNING AND 600 MG IN EVENING, TOTAL DAILY DOSE 900 MG, 600
     Dates: start: 20111001
  4. RIBAVIRIN [Suspect]
     Indication: HEPATITIS C
     Dosage: TOTAL DAILY DOSE 1200 MG, 600 MG IN THE MORNING AND 600 MG IN EVENING, TOTAL DAILY DOSE 900 MG, 600
     Dates: start: 20110701
  5. INCIVEK [Suspect]
     Indication: HEPATITIS C
     Dosage: TOTAL DAILY DOSE 2100 MG DAILY, TWO TABLETS (700 MG) THREE TIMES DAILY
     Dates: start: 20110701

REACTIONS (4)
  - RENAL PAIN [None]
  - MEMORY IMPAIRMENT [None]
  - DISTURBANCE IN ATTENTION [None]
  - RENAL FUNCTION TEST ABNORMAL [None]
